FAERS Safety Report 24412647 (Version 4)
Quarter: 2025Q1

REPORT INFORMATION
  Report Type: Spontaneous
  Country: US (occurrence: US)
  Receive Date: 20241008
  Receipt Date: 20250117
  Transmission Date: 20250409
  Serious: No
  Sender: Kenvue
  Company Number: US-JNJFOC-20241022081

PATIENT
  Sex: Male

DRUGS (7)
  1. TYLENOL [Suspect]
     Active Substance: ACETAMINOPHEN
     Indication: Headache
     Route: 065
  2. TREPROSTINIL [Concomitant]
     Active Substance: TREPROSTINIL
     Indication: Pulmonary arterial hypertension
     Dates: start: 2024, end: 2024
  3. TYVASO [Concomitant]
     Active Substance: TREPROSTINIL
     Indication: Pulmonary arterial hypertension
  4. TYVASO [Concomitant]
     Active Substance: TREPROSTINIL
     Dosage: 32 MICROGRAM, FOUR TIME A DAY
     Dates: start: 2024, end: 2024
  5. TYVASO [Concomitant]
     Active Substance: TREPROSTINIL
     Dosage: 48 MICROGRAM, FOUR TIME A DAY
     Dates: start: 2024, end: 2024
  6. TYVASO [Concomitant]
     Active Substance: TREPROSTINIL
     Dosage: 64 MICROGRAM, FOUR TIME A DAY
     Dates: start: 2024
  7. TYVASO [Concomitant]
     Active Substance: TREPROSTINIL
     Dates: start: 202406

REACTIONS (1)
  - Therapeutic product effect incomplete [Unknown]
